FAERS Safety Report 14413353 (Version 1)
Quarter: 2018Q1

REPORT INFORMATION
  Report Type: Spontaneous
  Country: FI (occurrence: FI)
  Receive Date: 20180119
  Receipt Date: 20180119
  Transmission Date: 20180509
  Serious: Yes (Other)
  Sender: FDA-Public Use
  Company Number: FI-009507513-1801FIN005730

PATIENT
  Age: 50 Year
  Sex: Female

DRUGS (5)
  1. ZINPLAVA [Suspect]
     Active Substance: BEZLOTOXUMAB
     Indication: PROPHYLAXIS
     Dosage: INFUSION
  2. INVANZ [Concomitant]
     Active Substance: ERTAPENEM SODIUM
     Indication: URINARY TRACT INFECTION
  3. VANCOMYCIN [Concomitant]
     Active Substance: VANCOMYCIN
  4. CELLCEPT [Concomitant]
     Active Substance: MYCOPHENOLATE MOFETIL\MYCOPHENOLATE MOFETIL HYDROCHLORIDE
  5. ADVAGRAF [Concomitant]
     Active Substance: TACROLIMUS

REACTIONS (2)
  - Clostridium difficile infection [Recovered/Resolved]
  - Drug ineffective [Unknown]
